FAERS Safety Report 6767693-5 (Version None)
Quarter: 2010Q2

REPORT INFORMATION
  Report Type: 
  Country: None (occurrence: None)
  Receive Date: 20100614
  Receipt Date: 20100603
  Transmission Date: 20101027
  Serious: Yes (Hospitalization)
  Sender: FDA-Public Use
  Company Number: JP-ROCHE-664263

PATIENT
  Sex: Male
  Weight: 69 kg

DRUGS (16)
  1. TOCILIZUMAB [Suspect]
     Indication: RHEUMATOID ARTHRITIS
     Route: 041
     Dates: start: 20081211, end: 20081211
  2. TOCILIZUMAB [Suspect]
     Route: 041
     Dates: start: 20090108, end: 20090108
  3. TOCILIZUMAB [Suspect]
     Route: 041
     Dates: start: 20090205, end: 20090205
  4. TOCILIZUMAB [Suspect]
     Route: 041
     Dates: start: 20090305, end: 20090305
  5. TOCILIZUMAB [Suspect]
     Route: 041
     Dates: start: 20090402, end: 20090402
  6. TOCILIZUMAB [Suspect]
     Route: 041
     Dates: start: 20090514, end: 20090514
  7. TOCILIZUMAB [Suspect]
     Route: 041
     Dates: start: 20090617, end: 20090617
  8. TOCILIZUMAB [Suspect]
     Route: 041
     Dates: start: 20090715, end: 20090715
  9. TOCILIZUMAB [Suspect]
     Route: 041
     Dates: end: 20091007
  10. AZULFIDINE [Concomitant]
     Route: 048
     Dates: start: 20080929
  11. RHEUMATREX [Concomitant]
     Route: 048
     Dates: start: 20080929, end: 20081019
  12. RHEUMATREX [Concomitant]
     Route: 048
     Dates: start: 20081020, end: 20090507
  13. PREDNISOLONE [Concomitant]
     Dosage: DOSE FORM: PERORAL AGENT
     Route: 048
     Dates: start: 20080919, end: 20090107
  14. PREDNISOLONE [Concomitant]
     Route: 048
     Dates: start: 20090108, end: 20090122
  15. PREDNISOLONE [Concomitant]
     Route: 048
     Dates: start: 20090101
  16. CELCOX [Concomitant]
     Route: 048
     Dates: start: 20080929

REACTIONS (2)
  - PROSTATE CANCER [None]
  - WHITE BLOOD CELL COUNT DECREASED [None]
